FAERS Safety Report 5842377-6 (Version None)
Quarter: 2008Q3

REPORT INFORMATION
  Report Type: 
  Country: None (occurrence: None)
  Receive Date: 20080812
  Receipt Date: 20080806
  Transmission Date: 20090109
  Serious: Yes (Other)
  Sender: FDA-Public Use
  Company Number: GB-BOEHRINGER INGELHEIM GMBH, GERMANY-2008-UK-01445UK

PATIENT
  Age: 61 Year
  Sex: Male
  Weight: 58 kg

DRUGS (2)
  1. ATROVENT [Suspect]
     Indication: BRONCHOSPASM
     Route: 055
     Dates: start: 20080716, end: 20080721
  2. ALBUTEROL [Concomitant]
     Indication: BRONCHOSPASM
     Dates: start: 20060630

REACTIONS (2)
  - LOSS OF CONSCIOUSNESS [None]
  - SYNCOPE [None]
